FAERS Safety Report 9928489 (Version 1)
Quarter: 2014Q1

REPORT INFORMATION
  Report Type: Spontaneous
  Country: US (occurrence: None)
  Receive Date: 20140224
  Receipt Date: 20140224
  Transmission Date: 20141002
  Serious: Yes (Death)
  Sender: FDA-Public Use
  Company Number: NL01PV14.35285

PATIENT
  Age: 62 Year
  Sex: Male

DRUGS (5)
  1. UNKNOWN (ZOLPIDEM) TABLET [Suspect]
  2. COCAINE (COCAINE) [Suspect]
  3. PHENCYCLIDINE [Suspect]
  4. TRAMADOL (TRAMADOL) [Suspect]
  5. SERTRALINE (SERTRALINE) [Suspect]

REACTIONS (1)
  - Drug abuse [None]
